FAERS Safety Report 9241752 (Version 2)
Quarter: 2014Q1

REPORT INFORMATION
  Report Type: Spontaneous
  Country: US (occurrence: US)
  Receive Date: 20130419
  Receipt Date: 20140324
  Transmission Date: 20141002
  Serious: Yes (Other)
  Sender: FDA-Public Use
  Company Number: US-SANOFI-AVENTIS-2013SA039481

PATIENT
  Age: 74 Year
  Sex: Male

DRUGS (2)
  1. LANTUS [Suspect]
     Indication: DIABETES MELLITUS
     Dosage: PRODUCT START DATE: 10 YEARS AGO DOSE:38 UNIT(S)
     Route: 051
  2. INSULIN [Concomitant]

REACTIONS (2)
  - Blindness [Unknown]
  - Macular degeneration [Unknown]
